FAERS Safety Report 12170600 (Version 4)
Quarter: 2016Q3

REPORT INFORMATION
  Report Type: Spontaneous
  Country: US (occurrence: US)
  Receive Date: 20160311
  Receipt Date: 20160812
  Transmission Date: 20161109
  Serious: Yes (Other)
  Sender: FDA-Public Use
  Company Number: US-TEVA-637715USA

PATIENT
  Age: 18 Year
  Sex: Female

DRUGS (1)
  1. ZECUITY [Suspect]
     Active Substance: SUMATRIPTAN SUCCINATE
     Indication: MIGRAINE
     Route: 062
     Dates: start: 20160213, end: 20160213

REACTIONS (10)
  - Application site discolouration [Recovered/Resolved]
  - Application site burn [Recovered/Resolved]
  - Application site paraesthesia [Recovered/Resolved]
  - Drug ineffective [Unknown]
  - Application site erythema [Recovered/Resolved]
  - Application site dryness [Recovered/Resolved]
  - Application site exfoliation [Recovered/Resolved]
  - Application site rash [Recovered/Resolved]
  - Application site pain [Recovered/Resolved]
  - Hypersensitivity [Recovered/Resolved]

NARRATIVE: CASE EVENT DATE: 20160213
